FAERS Safety Report 21407320 (Version 2)
Quarter: 2022Q4

REPORT INFORMATION
  Report Type: Spontaneous
  Country: US (occurrence: US)
  Receive Date: 20221004
  Receipt Date: 20221205
  Transmission Date: 20230113
  Serious: No
  Sender: FDA-Public Use
  Company Number: US-THERATECHNOLOGIES INC.-2022-THE-IBA-000285

PATIENT

DRUGS (3)
  1. TROGARZO [Suspect]
     Active Substance: IBALIZUMAB-UIYK
     Indication: HIV infection
     Dosage: LOADING DOSE
     Route: 042
     Dates: start: 20220329, end: 20220329
  2. TROGARZO [Suspect]
     Active Substance: IBALIZUMAB-UIYK
     Dosage: 800 MG, Q14 DAYS
     Route: 042
     Dates: end: 20220621
  3. TROGARZO [Suspect]
     Active Substance: IBALIZUMAB-UIYK
     Dosage: 800 MG, Q14 DAYS
     Route: 042

REACTIONS (4)
  - Scar [Unknown]
  - Food allergy [Recovered/Resolved]
  - Ear swelling [Recovered/Resolved]
  - Rash [Recovered/Resolved]

NARRATIVE: CASE EVENT DATE: 20220621
